FAERS Safety Report 14943670 (Version 1)
Quarter: 2018Q2

REPORT INFORMATION
  Report Type: Spontaneous
  Country: US (occurrence: US)
  Receive Date: 20180528
  Receipt Date: 20180528
  Transmission Date: 20180711
  Serious: No
  Sender: FDA-Public Use
  Company Number: US-TEVA-2018-US-899127

PATIENT
  Age: 40 Year
  Sex: Male
  Weight: 85 kg

DRUGS (5)
  1. FENTORA [Concomitant]
     Active Substance: FENTANYL CITRATE
     Indication: GASTROINTESTINAL PAIN
  2. OXYCODONE HYDROCHLORIDE. [Suspect]
     Active Substance: OXYCODONE HYDROCHLORIDE
     Route: 065
  3. EDARBI [Concomitant]
     Active Substance: AZILSARTAN KAMEDOXOMIL
  4. FENTANYL. [Concomitant]
     Active Substance: FENTANYL
     Route: 065
     Dates: start: 201604, end: 20180429
  5. FENTORA [Concomitant]
     Active Substance: FENTANYL CITRATE
     Indication: PAIN
     Route: 065
     Dates: start: 201604, end: 201801

REACTIONS (7)
  - Vomiting [Unknown]
  - Nausea [Unknown]
  - Incorrect dose administered [Unknown]
  - Withdrawal syndrome [Unknown]
  - Pyrexia [Unknown]
  - Pain [Not Recovered/Not Resolved]
  - Tremor [Unknown]

NARRATIVE: CASE EVENT DATE: 20180506
